FAERS Safety Report 9443717 (Version 1)
Quarter: 2013Q3

REPORT INFORMATION
  Report Type: Report from Study
  Country: BR (occurrence: BR)
  Receive Date: 20130806
  Receipt Date: 20130806
  Transmission Date: 20140515
  Serious: Yes (Other)
  Sender: FDA-Public Use
  Company Number: PHHY2013BR084317

PATIENT
  Sex: Female

DRUGS (3)
  1. DIOVAN [Suspect]
     Indication: BLOOD PRESSURE ABNORMAL
  2. DIOVAN HCT [Suspect]
     Indication: BLOOD PRESSURE ABNORMAL
     Dosage: 1 DF (VAL 80 MG, HCTZ 12.5 MG), QD
  3. VASOPRIL PLUS [Suspect]
     Indication: BLOOD PRESSURE ABNORMAL
     Dosage: 1 DF (ENALAPRIL MALEATE 20 MG, HCTZ 12.5 MG  ), BID

REACTIONS (7)
  - Diabetes mellitus [Not Recovered/Not Resolved]
  - Cerebrovascular accident [Not Recovered/Not Resolved]
  - Bipolar disorder [Not Recovered/Not Resolved]
  - Renal impairment [Not Recovered/Not Resolved]
  - Blood pressure systolic increased [Not Recovered/Not Resolved]
  - Blood pressure fluctuation [Not Recovered/Not Resolved]
  - Drug ineffective [Unknown]
